FAERS Safety Report 7032793-1 (Version None)
Quarter: 2010Q4

REPORT INFORMATION
  Report Type: 
  Country: None (occurrence: None)
  Receive Date: 20101007
  Receipt Date: 20101004
  Transmission Date: 20110411
  Serious: Yes (Death)
  Sender: FDA-Public Use
  Company Number: FR-SANOFI-AVENTIS-2010SA059965

PATIENT
  Age: 68 Year
  Sex: Male

DRUGS (10)
  1. OXALIPLATIN [Suspect]
     Indication: GASTROINTESTINAL CARCINOMA
     Route: 042
     Dates: start: 20100128, end: 20100408
  2. FOLINIC ACID [Suspect]
     Indication: GASTROINTESTINAL CARCINOMA
     Route: 042
     Dates: start: 20100128, end: 20100408
  3. FLUOROURACIL [Suspect]
     Indication: GASTROINTESTINAL CARCINOMA
     Route: 040
     Dates: start: 20100128, end: 20100408
  4. FLUOROURACIL [Suspect]
     Route: 042
     Dates: start: 20100128, end: 20100408
  5. GLUCOPHAGE [Concomitant]
  6. DIAMICRON [Concomitant]
  7. JANUVIA [Concomitant]
  8. TINZAPARIN SODIUM [Concomitant]
     Route: 058
     Dates: start: 20100114
  9. ICAZ [Concomitant]
  10. PROSCAR [Concomitant]

REACTIONS (8)
  - ANAEMIA [None]
  - ASCITES [None]
  - BLOOD BILIRUBIN INCREASED [None]
  - CONFUSIONAL STATE [None]
  - FOCAL NODULAR HYPERPLASIA [None]
  - HEPATIC CIRRHOSIS [None]
  - MELAENA [None]
  - RENAL FAILURE [None]
